FAERS Safety Report 9011283 (Version 2)
Quarter: 2013Q1

REPORT INFORMATION
  Report Type: Spontaneous
  Country: US (occurrence: US)
  Receive Date: 20130109
  Receipt Date: 20130115
  Transmission Date: 20140127
  Serious: Yes (Hospitalization)
  Sender: FDA-Public Use
  Company Number: US-GILEAD-2013-0067550

PATIENT
  Sex: Female

DRUGS (3)
  1. LETAIRIS [Suspect]
     Indication: PULMONARY HYPERTENSION
     Dosage: 10 MG, QD
     Dates: start: 20120707
  2. LETAIRIS [Suspect]
     Indication: UNEVALUABLE EVENT
  3. VENTAVIS [Concomitant]

REACTIONS (1)
  - Gastrointestinal haemorrhage [Unknown]
